FAERS Safety Report 26175667 (Version 1)
Quarter: 2025Q4

REPORT INFORMATION
  Report Type: Spontaneous
  Country: US (occurrence: US)
  Receive Date: 20251218
  Receipt Date: 20251218
  Transmission Date: 20260117
  Serious: No
  Sender: JOHNSON AND JOHNSON
  Company Number: US-JNJFOC-20251203965

PATIENT

DRUGS (1)
  1. EVITHROM [Suspect]
     Active Substance: HUMAN THROMBIN
     Indication: Carotid endarterectomy

REACTIONS (1)
  - Expired product administered [Unknown]

NARRATIVE: CASE EVENT DATE: 20251201
